FAERS Safety Report 6392150-8 (Version None)
Quarter: 2010Q1

REPORT INFORMATION
  Report Type: 
  Country: None (occurrence: None)
  Receive Date: 20091007
  Receipt Date: 20090925
  Transmission Date: 20100710
  Serious: Yes (Other)
  Sender: FDA-Public Use
  Company Number: US-JNJFOC-20091000977

PATIENT
  Age: 6 Year
  Sex: Female
  Weight: 18.6 kg

DRUGS (3)
  1. CHILDREN'S TYLENOL SUSPENSION [Suspect]
     Route: 048
  2. CHILDREN'S TYLENOL SUSPENSION [Suspect]
     Indication: PAIN IN EXTREMITY
     Route: 048
  3. INFLUENZA VACCINE [Concomitant]

REACTIONS (2)
  - MALAISE [None]
  - TRANSMISSION OF AN INFECTIOUS AGENT VIA A MEDICINAL PRODUCT [None]
